FAERS Safety Report 6200729-9 (Version None)
Quarter: 2009Q2

REPORT INFORMATION
  Report Type: 
  Country: None (occurrence: None)
  Receive Date: 20090522
  Receipt Date: 20090105
  Transmission Date: 20091009
  Serious: Yes (Other)
  Sender: FDA-Public Use
  Company Number: US-JNJCH-2009000196

PATIENT
  Age: 35 Year
  Sex: Female
  Weight: 59 kg

DRUGS (1)
  1. PEDIACARE GENTLE VAPORS REFILL [Suspect]
     Indication: NASOPHARYNGITIS
     Dosage: TEXT:RECOMMEND USE 1X  NIGHTLY
     Route: 061

REACTIONS (4)
  - ACCIDENTAL EXPOSURE [None]
  - APPLICATION SITE BURN [None]
  - APPLICATION SITE IRRITATION [None]
  - PRODUCT QUALITY ISSUE [None]
